FAERS Safety Report 14953486 (Version 2)
Quarter: 2018Q3

REPORT INFORMATION
  Report Type: Spontaneous
  Country: MX (occurrence: MX)
  Receive Date: 20180530
  Receipt Date: 20180710
  Transmission Date: 20181010
  Serious: Yes (Other)
  Sender: FDA-Public Use
  Company Number: MX-CELLTRION INC.-2018MX020049

PATIENT

DRUGS (4)
  1. FOLIC ACID. [Concomitant]
     Active Substance: FOLIC ACID
  2. METHOTREXATE (METHOTREXATE SODIUM) [Concomitant]
     Active Substance: METHOTREXATE SODIUM
  3. INFLIXIMAB PFIZER (UNKNOWN) [Suspect]
     Active Substance: INFLIXIMAB
     Indication: ANKYLOSING SPONDYLITIS
     Dosage: UNK (400, UNSPECIFIED UNIT), CYCLIC (EVERY 8 WEEKS)
     Route: 042
     Dates: start: 201705
  4. CELECOXIB. [Concomitant]
     Active Substance: CELECOXIB
     Dosage: UNK
     Dates: start: 2013

REACTIONS (4)
  - Influenza [Recovered/Resolved]
  - Oral herpes [Unknown]
  - Pneumonia [Recovered/Resolved]
  - Drug effect decreased [Unknown]

NARRATIVE: CASE EVENT DATE: 20180420
